FAERS Safety Report 11114872 (Version 4)
Quarter: 2015Q3

REPORT INFORMATION
  Report Type: Spontaneous
  Country: US (occurrence: US)
  Receive Date: 20150515
  Receipt Date: 20150731
  Transmission Date: 20151125
  Serious: Yes (Hospitalization, Other)
  Sender: FDA-Public Use
  Company Number: US-AMGEN-USASP2015045994

PATIENT
  Age: 28 Year
  Sex: Female

DRUGS (6)
  1. ENBREL [Suspect]
     Active Substance: ETANERCEPT
     Indication: PSORIASIS
     Dosage: 50 MG, QWK
     Route: 065
     Dates: start: 2011, end: 2015
  2. ENBREL [Suspect]
     Active Substance: ETANERCEPT
     Indication: PSORIATIC ARTHROPATHY
  3. VITAMIN B12 [Concomitant]
     Active Substance: CYANOCOBALAMIN
     Dosage: UNK
  4. B COMPLEX                          /00322001/ [Concomitant]
     Dosage: UNK
  5. NAPROXEN. [Concomitant]
     Active Substance: NAPROXEN
     Dosage: UNK
  6. MIRENA [Concomitant]
     Active Substance: LEVONORGESTREL
     Dosage: UNK

REACTIONS (10)
  - Unintended pregnancy [Recovered/Resolved]
  - Impaired healing [Unknown]
  - Malaise [Not Recovered/Not Resolved]
  - Caesarean section [Recovered/Resolved]
  - Suppressed lactation [Recovered/Resolved]
  - Arthralgia [Not Recovered/Not Resolved]
  - Septic arthritis staphylococcal [Unknown]
  - Psoriasis [Not Recovered/Not Resolved]
  - Streptococcal infection [Unknown]
  - Laceration [Unknown]

NARRATIVE: CASE EVENT DATE: 2014
